FAERS Safety Report 11994090 (Version 1)
Quarter: 2016Q1

REPORT INFORMATION
  Report Type: Spontaneous
  Country: CH (occurrence: CH)
  Receive Date: 20160203
  Receipt Date: 20160203
  Transmission Date: 20160526
  Serious: Yes (Death, Hospitalization, Other)
  Sender: FDA-Public Use
  Company Number: CH-PFIZER INC-2016057274

PATIENT
  Age: 81 Year
  Sex: Male
  Weight: 67 kg

DRUGS (15)
  1. THALIDOMID [Suspect]
     Active Substance: THALIDOMIDE
     Indication: BEHCET^S SYNDROME
     Dosage: 50 MG, DAILY
     Route: 048
     Dates: start: 20151022, end: 20160101
  2. RESYL PLUS [Suspect]
     Active Substance: CODEINE PHOSPHATE\GUAIFENESIN
     Indication: BEHCET^S SYNDROME
     Dosage: 30 GTT, DAILY (DROPS)
     Route: 048
     Dates: end: 20160101
  3. NOVALGIN [Suspect]
     Active Substance: METAMIZOLE SODIUM
     Dosage: 20 GTT, FOUR TIMES A DAY (DROPS)
     Route: 048
     Dates: end: 20160101
  4. ZENTEL [Suspect]
     Active Substance: ALBENDAZOLE
     Indication: HEPATIC ECHINOCOCCIASIS
     Dosage: 400 MG, 2X/DAY
     Route: 048
  5. ATACAND [Concomitant]
     Active Substance: CANDESARTAN CILEXETIL
     Dosage: 8 MG, UNK
  6. TAMSULOSIN SANDOZ ECO [Concomitant]
     Dosage: 0.4 MG, UNK
  7. KENACORT A ORABASE [Concomitant]
     Dosage: UNK
  8. PANTOZOL [Suspect]
     Active Substance: PANTOPRAZOLE SODIUM
     Dosage: 40 MG, DAILY
     Route: 048
  9. PALEXIA [Concomitant]
     Active Substance: TAPENTADOL HYDROCHLORIDE
     Dosage: 50 MG, UNK
  10. TRANSIPEG /01618701/ [Concomitant]
     Active Substance: POLYETHYLENE GLYCOL 3350\POTASSIUM CHLORIDE\SODIUM BICARBONATE\SODIUM CHLORIDE\SODIUM SULFATE ANHYDROUS
     Dosage: UNK
     Route: 048
  11. KAMILLOSAN /00512604/ [Concomitant]
     Dosage: UNK
  12. ASPIRIN CARDIO [Concomitant]
     Active Substance: ASPIRIN
     Dosage: 100 MG, UNK
  13. ATORVASTATIN PFIZER [Concomitant]
     Active Substance: ATORVASTATIN
     Dosage: UNK
  14. ALCACYL /00002703/ [Concomitant]
     Dosage: UNK
  15. LAXOBERON [Concomitant]
     Active Substance: SODIUM PICOSULFATE
     Dosage: 7.5 MG, UNK

REACTIONS (5)
  - Leukopenia [Recovered/Resolved]
  - Pneumonia escherichia [Fatal]
  - Septic shock [Fatal]
  - Death [Fatal]
  - Lymphocyte count decreased [Recovering/Resolving]

NARRATIVE: CASE EVENT DATE: 20151117
